FAERS Safety Report 16872860 (Version 1)
Quarter: 2019Q4

REPORT INFORMATION
  Report Type: Spontaneous
  Country: US (occurrence: US)
  Receive Date: 20191001
  Receipt Date: 20191001
  Transmission Date: 20200122
  Serious: Yes (Hospitalization)
  Sender: FDA-Public Use
  Company Number: None

PATIENT
  Age: 47 Year
  Sex: Female

DRUGS (7)
  1. DICLOFENAC GEL [Concomitant]
     Active Substance: DICLOFENAC
  2. SPIRONOLACT [Concomitant]
     Active Substance: SPIRONOLACTONE
  3. CAPECITABINE. [Suspect]
     Active Substance: CAPECITABINE
     Indication: COLORECTAL CANCER
     Route: 048
     Dates: start: 20190624
  4. DRONABINOL. [Concomitant]
     Active Substance: DRONABINOL
  5. COLLAGENASE SANTYL [Concomitant]
     Active Substance: COLLAGENASE CLOSTRIDIUM HISTOLYTICUM
  6. METHYLPRED [Concomitant]
     Active Substance: METHYLPREDNISOLONE
  7. MAGNESIUM-OX [Concomitant]

REACTIONS (1)
  - Hospitalisation [None]
